FAERS Safety Report 12062867 (Version 2)
Quarter: 2016Q2

REPORT INFORMATION
  Report Type: Spontaneous
  Country: JP (occurrence: JP)
  Receive Date: 20160210
  Receipt Date: 20160516
  Transmission Date: 20160815
  Serious: Yes (Other)
  Sender: FDA-Public Use
  Company Number: JP-PFIZER INC-2016068621

PATIENT
  Sex: Male

DRUGS (2)
  1. CONSTAN [Suspect]
     Active Substance: ALPRAZOLAM
     Dosage: 1.2 MG, DAILY
     Route: 064
  2. JZOLOFT [Suspect]
     Active Substance: SERTRALINE HYDROCHLORIDE
     Dosage: 50 MG, DAILY
     Route: 064

REACTIONS (3)
  - Maternal exposure during pregnancy [Recovered/Resolved]
  - Drug withdrawal syndrome neonatal [Recovered/Resolved]
  - Neonatal disorder [Recovered/Resolved]

NARRATIVE: CASE EVENT DATE: 20160201
